FAERS Safety Report 6837175-0 (Version None)
Quarter: 2010Q3

REPORT INFORMATION
  Report Type: 
  Country: None (occurrence: None)
  Receive Date: 20100713
  Receipt Date: 20070507
  Transmission Date: 20110219
  Serious: No
  Sender: FDA-Public Use
  Company Number: US-PFIZER INC-2007037858

PATIENT
  Sex: Female
  Weight: 54.545 kg

DRUGS (6)
  1. CHANTIX [Suspect]
     Indication: SMOKING CESSATION THERAPY
     Dates: start: 20070423
  2. AVAPRO [Concomitant]
  3. LEXAPRO [Concomitant]
  4. NEXIUM [Concomitant]
  5. TRAZODONE HYDROCHLORIDE [Concomitant]
  6. VISTARIL [Concomitant]

REACTIONS (3)
  - ABDOMINAL PAIN [None]
  - DYSGEUSIA [None]
  - NAUSEA [None]
